FAERS Safety Report 12622098 (Version 1)
Quarter: 2016Q3

REPORT INFORMATION
  Report Type: Spontaneous
  Country: US (occurrence: US)
  Receive Date: 20160804
  Receipt Date: 20160804
  Transmission Date: 20161109
  Serious: No
  Sender: FDA-Public Use
  Company Number: US-ANACOR-2016ANA00186

PATIENT
  Sex: Female
  Weight: 79.37 kg

DRUGS (4)
  1. KERYDIN [Suspect]
     Active Substance: TAVABOROLE
     Dosage: 1 GTT, EVERY 48 HOURS
     Dates: start: 2016, end: 2016
  2. KERYDIN [Suspect]
     Active Substance: TAVABOROLE
     Dosage: 1 GTT, 2X/DAY
     Route: 061
     Dates: start: 2016, end: 2016
  3. HYDROXYZINE [Concomitant]
     Active Substance: HYDROXYZINE\HYDROXYZINE HYDROCHLORIDE
     Dosage: 25 MG, 3X/DAY
  4. LOSARTAN / HYDROCHLOROTHIAZIDE [Concomitant]
     Active Substance: HYDROCHLOROTHIAZIDE\LOSARTAN
     Dosage: 100/12.5 MG 1X/DAY

REACTIONS (2)
  - Rash papular [Recovered/Resolved]
  - Pruritus [Recovered/Resolved]

NARRATIVE: CASE EVENT DATE: 2016
